FAERS Safety Report 25585325 (Version 1)
Quarter: 2025Q3

REPORT INFORMATION
  Report Type: Spontaneous
  Country: QA (occurrence: QA)
  Receive Date: 20250721
  Receipt Date: 20250721
  Transmission Date: 20251021
  Serious: Yes (Other)
  Sender: APOTEX
  Company Number: QA-APOTEX-2025AP010236

PATIENT

DRUGS (2)
  1. IMATINIB [Interacting]
     Active Substance: IMATINIB
     Indication: Chronic myeloid leukaemia transformation
     Route: 065
  2. DANAPAROID [Interacting]
     Active Substance: DANAPAROID
     Indication: Prophylaxis
     Route: 065

REACTIONS (3)
  - Disseminated intravascular coagulation [Recovered/Resolved]
  - Condition aggravated [Recovered/Resolved]
  - Drug interaction [Unknown]
